FAERS Safety Report 4987461-4 (Version None)
Quarter: 2006Q2

REPORT INFORMATION
  Report Type: 
  Country: None (occurrence: None)
  Receive Date: 20060424
  Receipt Date: 20060413
  Transmission Date: 20061013
  Serious: Yes (Hospitalization)
  Sender: FDA-Public Use
  Company Number: FABR-11478

PATIENT
  Age: 34 Year
  Sex: Female
  Weight: 108 kg

DRUGS (1)
  1. FABRAZYME [Suspect]
     Indication: FABRY'S DISEASE
     Dosage: 105 MG Q2WKS IV
     Route: 042
     Dates: start: 20041105

REACTIONS (4)
  - ARNOLD-CHIARI MALFORMATION [None]
  - INTRACRANIAL HYPOTENSION [None]
  - PAIN [None]
  - POST PROCEDURAL COMPLICATION [None]
